FAERS Safety Report 9351665 (Version 6)
Quarter: 2014Q2

REPORT INFORMATION
  Report Type: Spontaneous
  Country: US (occurrence: US)
  Receive Date: 20130617
  Receipt Date: 20140527
  Transmission Date: 20141212
  Serious: Yes (Hospitalization, Other)
  Sender: FDA-Public Use
  Company Number: US-009507513-1306USA004337

PATIENT
  Sex: Male

DRUGS (1)
  1. PROPECIA [Suspect]
     Indication: ALOPECIA
     Dosage: 1 MG, QD
     Route: 048
     Dates: start: 20000106, end: 201301

REACTIONS (29)
  - Prostate cancer [Recovering/Resolving]
  - Radical prostatectomy [Unknown]
  - Lymphadenectomy [Unknown]
  - Endarterectomy [Unknown]
  - Carotid artery stenosis [Unknown]
  - Calculus bladder [Recovered/Resolved]
  - Seasonal allergy [Unknown]
  - Coronary artery disease [Unknown]
  - Peripheral vascular disorder [Unknown]
  - Hypertension [Unknown]
  - Obesity [Unknown]
  - Urinary tract infection [Unknown]
  - Prostatitis [Unknown]
  - Arthritis [Unknown]
  - Carotid artery occlusion [Unknown]
  - Asthma [Recovering/Resolving]
  - Carotid artery stent insertion [Unknown]
  - Onychomycosis [Unknown]
  - Weight decreased [Unknown]
  - Weight increased [Unknown]
  - Rhinitis allergic [Unknown]
  - Anxiety [Unknown]
  - Asthma [Unknown]
  - Weight increased [Unknown]
  - Urinary bladder haemorrhage [Unknown]
  - Urinary retention [Unknown]
  - Dysuria [Unknown]
  - Sexual dysfunction [Not Recovered/Not Resolved]
  - Erectile dysfunction [Not Recovered/Not Resolved]
